FAERS Safety Report 19132209 (Version 2)
Quarter: 2021Q2

REPORT INFORMATION
  Report Type: Spontaneous
  Country: JP (occurrence: JP)
  Receive Date: 20210414
  Receipt Date: 20210426
  Transmission Date: 20210717
  Serious: Yes (Other)
  Sender: FDA-Public Use
  Company Number: JP-BAXTER-2021BAX007229

PATIENT
  Age: 25 Year
  Sex: Female

DRUGS (2)
  1. CISPLATIN. [Suspect]
     Active Substance: CISPLATIN
     Indication: OSTEOSARCOMA
     Dosage: ;CYCLICAL
     Route: 065
  2. DOXIL [Suspect]
     Active Substance: DOXORUBICIN HYDROCHLORIDE
     Indication: OSTEOSARCOMA
     Dosage: DOXORUBICIN 30 MG/M /24 HOURS DAY 1 AND DAY 2; CYCLICAL
     Route: 065

REACTIONS (3)
  - Nausea [Unknown]
  - Ototoxicity [Unknown]
  - Tinnitus [Unknown]
